FAERS Safety Report 4283454-3 (Version None)
Quarter: 2004Q1

REPORT INFORMATION
  Report Type: 
  Country: None (occurrence: None)
  Receive Date: 20040121
  Receipt Date: 20030117
  Transmission Date: 20041129
  Serious: Yes (Hospitalization)
  Sender: FDA-Public Use
  Company Number: A03200300105

PATIENT
  Age: 55 Year
  Sex: Female
  Weight: 104.3273 kg

DRUGS (7)
  1. PLAVIX [Suspect]
     Indication: ANGIOPLASTY
     Dosage: 75 MG QD - ORAL
     Route: 048
     Dates: start: 20021218, end: 20030113
  2. PLAVIX [Suspect]
     Indication: MYOCARDIAL INFARCTION
     Dosage: 75 MG QD - ORAL
     Route: 048
     Dates: start: 20021218, end: 20030113
  3. NAPROSYN [Suspect]
     Indication: ARTHRITIS
     Dosage: ORAL
     Route: 048
  4. GLIPIZIDE [Concomitant]
  5. METFORMIN HYDROCHLORIDE [Concomitant]
  6. PANTOPRAZOLE SODIUM [Concomitant]
  7. FLUVASTATIN SODIUM [Concomitant]

REACTIONS (4)
  - ANAEMIA [None]
  - DRUG INTERACTION [None]
  - GASTRIC ULCER HAEMORRHAGE [None]
  - MELAENA [None]
